FAERS Safety Report 5133605-3 (Version None)
Quarter: 2006Q4

REPORT INFORMATION
  Report Type: 
  Country: None (occurrence: None)
  Receive Date: 20061024
  Receipt Date: 20060502
  Transmission Date: 20070319
  Serious: No
  Sender: FDA-Public Use
  Company Number: US-AMGEN-US178243

PATIENT
  Sex: Male

DRUGS (3)
  1. SENSIPAR [Suspect]
     Indication: HYPERPARATHYROIDISM SECONDARY
     Route: 048
     Dates: start: 20060414, end: 20060424
  2. SENSIPAR [Suspect]
     Route: 048
     Dates: start: 20060427, end: 20060428
  3. EPOGEN [Concomitant]
     Indication: DIALYSIS

REACTIONS (2)
  - FACE OEDEMA [None]
  - SWOLLEN TONGUE [None]
